FAERS Safety Report 7629299-5 (Version None)
Quarter: 2011Q3

REPORT INFORMATION
  Report Type: 
  Country: None (occurrence: None)
  Receive Date: 20110722
  Receipt Date: 20110719
  Transmission Date: 20111222
  Serious: Yes (Other)
  Sender: FDA-Public Use
  Company Number: US-PFIZER INC-2011145703

PATIENT
  Sex: Female
  Weight: 80.272 kg

DRUGS (10)
  1. ZOLOFT [Suspect]
     Indication: PANIC DISORDER
     Dosage: 200 MG, 1X/DAY
     Route: 048
  2. ZOLOFT [Suspect]
     Indication: POST-TRAUMATIC STRESS DISORDER
  3. XANAX [Concomitant]
     Dosage: UNK
  4. PRILOSEC [Concomitant]
     Dosage: UNK
  5. LORTAB [Concomitant]
     Dosage: UNK
  6. ZOLOFT [Suspect]
     Indication: MAJOR DEPRESSION
  7. LIPITOR [Concomitant]
     Dosage: UNK
  8. VASOTEC [Concomitant]
     Dosage: UNK
  9. TOPROL-XL [Concomitant]
     Dosage: UNK
  10. FLEXERIL [Concomitant]
     Dosage: UNK

REACTIONS (3)
  - OSTEOARTHRITIS [None]
  - HIATUS HERNIA [None]
  - CHEST DISCOMFORT [None]
